FAERS Safety Report 7867791-9 (Version None)
Quarter: 2011Q4

REPORT INFORMATION
  Report Type: 
  Country: None (occurrence: None)
  Receive Date: 20111028
  Receipt Date: 20111021
  Transmission Date: 20120403
  Serious: Yes (Hospitalization)
  Sender: FDA-Public Use
  Company Number: US-BRISTOL-MYERS SQUIBB COMPANY-13856927

PATIENT
  Age: 50 Year
  Sex: Female
  Weight: 79 kg

DRUGS (1)
  1. CISPLATIN [Suspect]
     Indication: HEAD AND NECK CANCER
     Dates: start: 20070625, end: 20070625

REACTIONS (19)
  - NAUSEA [None]
  - VOMITING [None]
  - DIARRHOEA [None]
  - PAIN [None]
  - DECREASED APPETITE [None]
  - SPEECH DISORDER [None]
  - ANAEMIA [None]
  - LARYNGEAL OEDEMA [None]
  - TONGUE OEDEMA [None]
  - DYSPHAGIA [None]
  - HYPOCALCAEMIA [None]
  - BLOOD CREATININE INCREASED [None]
  - LARYNGEAL INFLAMMATION [None]
  - STOMATITIS [None]
  - HYPOALBUMINAEMIA [None]
  - HYPOKALAEMIA [None]
  - URINARY TRACT INFECTION [None]
  - WEIGHT DECREASED [None]
  - PLATELET COUNT DECREASED [None]
